FAERS Safety Report 9861950 (Version 1)
Quarter: 2014Q1

REPORT INFORMATION
  Report Type: Report from Study
  Country: CO (occurrence: CO)
  Receive Date: 20140203
  Receipt Date: 20140203
  Transmission Date: 20141002
  Serious: Yes (Death)
  Sender: FDA-Public Use
  Company Number: CO-SA-2014SA010194

PATIENT
  Age: 88 Year
  Sex: Female

DRUGS (2)
  1. LANTUS [Suspect]
     Indication: DIABETES MELLITUS
     Dosage: DOSE:46 UNIT(S)
     Route: 058
     Dates: end: 20140109
  2. APIDRA [Suspect]
     Indication: DIABETES MELLITUS
     Dosage: DOSE:16 UNIT(S)
     Route: 058
     Dates: end: 20140109

REACTIONS (1)
  - Cardio-respiratory arrest [Fatal]
